FAERS Safety Report 25467033 (Version 1)
Quarter: 2025Q2

REPORT INFORMATION
  Report Type: Spontaneous
  Country: CN (occurrence: CN)
  Receive Date: 20250623
  Receipt Date: 20250623
  Transmission Date: 20250717
  Serious: Yes (Other)
  Sender: REGENERON
  Company Number: CN-SA-2025SA173325

PATIENT
  Age: 51 Year
  Sex: Male

DRUGS (2)
  1. PRALUENT [Suspect]
     Active Substance: ALIROCUMAB
     Indication: Acute coronary syndrome
     Dosage: 75 MG, QOW; SOLUTION FOR INJECTION
     Route: 058
     Dates: start: 20230423, end: 20250617
  2. ATORVASTATIN CALCIUM [Suspect]
     Active Substance: ATORVASTATIN CALCIUM
     Indication: Acute coronary syndrome
     Dosage: 20 MG, QD
     Route: 048
     Dates: start: 20230421, end: 20250617

REACTIONS (4)
  - Dermatitis allergic [Recovering/Resolving]
  - Erythema [Recovering/Resolving]
  - Papule [Recovering/Resolving]
  - Pruritus [Recovering/Resolving]

NARRATIVE: CASE EVENT DATE: 20230528
